FAERS Safety Report 24902363 (Version 1)
Quarter: 2025Q1

REPORT INFORMATION
  Report Type: Report from Study
  Country: US (occurrence: US)
  Receive Date: 20250130
  Receipt Date: 20250130
  Transmission Date: 20250409
  Serious: Yes (Other)
  Sender: ABBVIE
  Company Number: US-ABBVIE-6072267

PATIENT
  Age: 83 Year
  Sex: Female

DRUGS (1)
  1. SKYRIZI [Suspect]
     Active Substance: RISANKIZUMAB-RZAA
     Indication: Psoriasis
     Route: 058
     Dates: start: 2023

REACTIONS (11)
  - Macular degeneration [Unknown]
  - Hypoacusis [Unknown]
  - Road traffic accident [Not Recovered/Not Resolved]
  - Traumatic pain [Not Recovered/Not Resolved]
  - Medical device implantation [Unknown]
  - Joint injection [Unknown]
  - Rotator cuff syndrome [Unknown]
  - Joint injection [Unknown]
  - Lymphoedema [Unknown]
  - Spinal operation [Unknown]
  - Middle ear effusion [Unknown]

NARRATIVE: CASE EVENT DATE: 20230101
